FAERS Safety Report 17186995 (Version 1)
Quarter: 2019Q4

REPORT INFORMATION
  Report Type: Spontaneous
  Country: DE (occurrence: DE)
  Receive Date: 20191220
  Receipt Date: 20191220
  Transmission Date: 20200122
  Serious: Yes (Other)
  Sender: FDA-Public Use
  Company Number: NVSC2019DE075274

PATIENT
  Sex: Male

DRUGS (2)
  1. ENTRESTO [Suspect]
     Active Substance: SACUBITRIL\VALSARTAN
     Indication: PRODUCT USED FOR UNKNOWN INDICATION
     Dosage: 100 MG
     Route: 065
     Dates: start: 2018
  2. ENTRESTO [Suspect]
     Active Substance: SACUBITRIL\VALSARTAN
     Dosage: 100 MG (0.5 DF IN MORNING, 0.5 DF IN EVENING, 1 DF PER NIGHT)
     Route: 065
     Dates: start: 2018

REACTIONS (7)
  - Renal impairment [Unknown]
  - Lung disorder [Not Recovered/Not Resolved]
  - Urinary tract infection [Recovering/Resolving]
  - Blood creatinine decreased [Unknown]
  - Wrong technique in product usage process [Not Recovered/Not Resolved]
  - Dyspnoea [Not Recovered/Not Resolved]
  - Snoring [Not Recovered/Not Resolved]

NARRATIVE: CASE EVENT DATE: 2019
